FAERS Safety Report 14031748 (Version 3)
Quarter: 2017Q4

REPORT INFORMATION
  Report Type: Spontaneous
  Country: US (occurrence: US)
  Receive Date: 20171003
  Receipt Date: 20171113
  Transmission Date: 20180321
  Serious: Yes (Other)
  Sender: FDA-Public Use
  Company Number: US-TEVA-811099ACC

PATIENT
  Age: 41 Year
  Sex: Female
  Weight: 116.39 kg

DRUGS (3)
  1. PARAGARD T 380A [Suspect]
     Active Substance: COPPER
     Indication: CONTRACEPTION
     Dates: start: 20170403, end: 20170403
  2. PARAGARD T 380A [Suspect]
     Active Substance: COPPER
     Dates: start: 20080326
  3. LISINOPRIL. [Concomitant]
     Active Substance: LISINOPRIL
     Dosage: 10 MILLIGRAM DAILY;
     Route: 048

REACTIONS (5)
  - Embedded device [Recovered/Resolved]
  - Menorrhagia [Unknown]
  - Discomfort [Unknown]
  - Pain [Unknown]
  - Device breakage [Recovered/Resolved]

NARRATIVE: CASE EVENT DATE: 20170328
